FAERS Safety Report 9131275 (Version 1)
Quarter: 2013Q1

REPORT INFORMATION
  Report Type: Spontaneous
  Country: US (occurrence: US)
  Receive Date: 20130301
  Receipt Date: 20130301
  Transmission Date: 20140127
  Serious: No
  Sender: FDA-Public Use
  Company Number: US-BAYER-2013-025974

PATIENT
  Age: 23 Year
  Sex: Male
  Weight: 54 kg

DRUGS (3)
  1. ALEVE GELCAP [Suspect]
     Dosage: 3 DF, PRN
     Route: 048
     Dates: start: 2009
  2. ADDERALL [Concomitant]
  3. ZOLOFT [Concomitant]

REACTIONS (1)
  - Inappropriate schedule of drug administration [None]
